FAERS Safety Report 17521908 (Version 1)
Quarter: 2020Q1

REPORT INFORMATION
  Report Type: Spontaneous
  Country: IT (occurrence: IT)
  Receive Date: 20200310
  Receipt Date: 20200310
  Transmission Date: 20200409
  Serious: Yes (Other)
  Sender: FDA-Public Use
  Company Number: IT-PFIZER INC-2020005303

PATIENT
  Age: 28 Year
  Sex: Male

DRUGS (2)
  1. TRIATEC (RAMIPRIL) [Suspect]
     Active Substance: RAMIPRIL
     Indication: HYPERTENSION
     Dosage: 5 MG QD
     Route: 048
     Dates: start: 20180915, end: 20180928
  2. TRIATEC (RAMIPRIL) [Suspect]
     Active Substance: RAMIPRIL
     Dosage: UNK
     Route: 065

REACTIONS (2)
  - Hypertensive crisis [Recovering/Resolving]
  - Therapeutic product ineffective [Unknown]

NARRATIVE: CASE EVENT DATE: 20180928
